FAERS Safety Report 11925837 (Version 1)
Quarter: 2016Q1

REPORT INFORMATION
  Report Type: Report from Study
  Country: US (occurrence: US)
  Receive Date: 20160118
  Receipt Date: 20160118
  Transmission Date: 20160526
  Serious: Yes (Death, Congenital Anomaly, Other)
  Sender: FDA-Public Use
  Company Number: US-BRISTOL-MYERS SQUIBB COMPANY-12055000

PATIENT
  Age: 0 Day
  Sex: Male
  Weight: 1.67 kg

DRUGS (2)
  1. DIDANOSINE. [Suspect]
     Active Substance: DIDANOSINE
     Indication: PRODUCT USED FOR UNKNOWN INDICATION
     Dosage: 400 MG, QD
     Route: 064
     Dates: end: 20020414
  2. EXTERNAL-LAMIVUDINE,ZIDOVUDINE [Suspect]
     Active Substance: LAMIVUDINE\ZIDOVUDINE
     Indication: PRODUCT USED FOR UNKNOWN INDICATION
     Dosage: 2 DF, QD
     Route: 064
     Dates: end: 20020414

REACTIONS (8)
  - Cleft palate [Unknown]
  - Chromosomal deletion [Fatal]
  - Cryptorchism [Unknown]
  - Premature baby [Unknown]
  - Foetal exposure during pregnancy [Unknown]
  - Respiratory failure [Fatal]
  - Cleft lip [Unknown]
  - Holoprosencephaly [Unknown]

NARRATIVE: CASE EVENT DATE: 20020414
